FAERS Safety Report 8757641 (Version 2)
Quarter: 2012Q4

REPORT INFORMATION
  Report Type: 
  Country: DK (occurrence: CH)
  Receive Date: 20120828
  Receipt Date: 20121016
  Transmission Date: 20130627
  Serious: Yes (Life-Threatening, Hospitalization)
  Sender: FDA-Public Use
  Company Number: CH-FRI-1000038158

PATIENT
  Sex: Male
  Weight: 88 kg

DRUGS (32)
  1. CITALOPRAM [Suspect]
     Dosage: 20 mg
     Route: 048
     Dates: start: 20120403
  2. CEFEPIME [Suspect]
     Indication: INTERVERTEBRAL DISCITIS
     Dosage: 6 Gram
     Route: 042
     Dates: start: 20120407, end: 20120421
  3. VANCOCIN [Suspect]
     Indication: INTERVERTEBRAL DISCITIS
     Dosage: 2 Gram
     Route: 042
     Dates: start: 20120407, end: 20120421
  4. TRAMAL [Suspect]
     Dates: start: 20120313, end: 20120314
  5. LASIX [Suspect]
     Dosage: 40 mg
     Route: 048
     Dates: start: 20120313, end: 20120407
  6. LASIX [Suspect]
     Dosage: 20 mg
     Route: 048
     Dates: start: 20120409, end: 20120416
  7. LASILACTON [Suspect]
     Dosage: 50 mg
     Route: 048
     Dates: start: 20120407
  8. TORASEMID [Suspect]
     Dosage: 10 mg
     Route: 048
     Dates: start: 20120417
  9. MORPHINE [Suspect]
     Dates: start: 20120313
  10. DUROGESIC [Concomitant]
     Dosage: 12 mcg
     Route: 050
     Dates: start: 20120411, end: 20120419
  11. COZAAR [Concomitant]
     Dosage: 50 mg
     Route: 048
     Dates: start: 20120413, end: 20120419
  12. LYRICA [Concomitant]
     Dosage: 25 mg
     Route: 048
     Dates: start: 20120313, end: 20120414
  13. MOVICOL [Concomitant]
     Dosage: 13.125 mg
     Route: 048
     Dates: start: 20120313, end: 20120414
  14. NAVOBAN [Concomitant]
     Dosage: 5 mg
     Route: 048
     Dates: start: 20120412, end: 20120416
  15. DROPERIDOL [Concomitant]
     Dates: start: 20120411, end: 20120421
  16. MOTILIUM [Concomitant]
     Dosage: 10 mg
     Route: 048
     Dates: start: 20120412, end: 20120420
  17. FRAGIM [Concomitant]
     Dosage: 7500 IU
     Route: 048
     Dates: start: 20120317, end: 20120407
  18. FRAGIM [Concomitant]
     Dosage: 5000 IU
     Dates: start: 20120407, end: 20120421
  19. ONDANSETRON [Concomitant]
     Dosage: 8 mg
     Route: 048
     Dates: start: 20120412
  20. NOVALGIN [Concomitant]
     Route: 048
     Dates: start: 20120411
  21. DIPIPERON [Concomitant]
     Dosage: 40 mg
     Route: 048
     Dates: start: 20120313
  22. ELTROXIN [Concomitant]
     Dosage: 100 mcg
     Route: 048
     Dates: start: 20120313
  23. METOPROLOL [Concomitant]
     Dosage: 25 mg
     Route: 048
     Dates: start: 20120313
  24. ZYLORIC [Concomitant]
     Dosage: 300 mg
     Route: 048
     Dates: start: 20120407
  25. KONAKION [Concomitant]
     Dosage: 10 mg
     Dates: start: 20120316, end: 20120329
  26. KONAKION [Concomitant]
     Dosage: 10 mg
     Dates: start: 20120422, end: 20120423
  27. NITRODERM [Concomitant]
     Dosage: 25 mg
     Route: 062
     Dates: start: 20120413
  28. IMODIUM [Concomitant]
     Dosage: 2 mg
     Route: 048
     Dates: start: 20120410
  29. FOLVITE [Concomitant]
     Dosage: 1 mg
     Route: 048
     Dates: start: 20120313
  30. MARCOUMAR [Concomitant]
     Dosage: 3 mg
     Route: 048
     Dates: start: 20120313
  31. PERENTEROL [Concomitant]
     Dosage: 250 mg
     Route: 048
     Dates: start: 20120414
  32. DAFALGAN [Concomitant]
     Dosage: 1000 mg
     Dates: start: 20120419

REACTIONS (3)
  - Renal failure acute [Recovering/Resolving]
  - Drug level increased [Recovering/Resolving]
  - Myoclonus [Recovering/Resolving]
